FAERS Safety Report 6376869-0 (Version None)
Quarter: 2009Q3

REPORT INFORMATION
  Report Type: 
  Country: None (occurrence: None)
  Receive Date: 20090925
  Receipt Date: 20090915
  Transmission Date: 20100115
  Serious: Yes (Hospitalization)
  Sender: FDA-Public Use
  Company Number: US-ALEXION-A200900622

PATIENT
  Sex: Male
  Weight: 93.8 kg

DRUGS (17)
  1. SOLIRIS [Suspect]
     Indication: PAROXYSMAL NOCTURNAL HAEMOGLOBINURIA
     Dosage: 600 MG, QW
     Route: 042
     Dates: start: 20090619, end: 20090709
  2. SOLIRIS [Suspect]
     Dosage: 900 MG, Q2W
     Route: 042
     Dates: start: 20090716, end: 20090101
  3. SOLIRIS [Suspect]
     Dosage: 600 MG, QW
     Route: 042
     Dates: start: 20090903
  4. SPIRONOLACTONE [Concomitant]
     Dosage: 25 MG, BID
  5. PLAVIX [Concomitant]
     Dosage: 25 MG, QOD
  6. CALCITRIOL [Concomitant]
     Dosage: 0.25 UG, QD
  7. SIMVASTATIN [Concomitant]
     Dosage: 40 MG, 1/2 A TAB ALTERNATING WITH A WHOLE TAB DAILY
  8. SIMVASTATIN [Concomitant]
     Dosage: 80 MG, EVERY OTHER DAY
  9. FOLIC ACID [Concomitant]
     Dosage: 1 MG, QD
  10. METOPROLOL [Concomitant]
     Dosage: 25 MG, BID
  11. ALLOPURINOL [Concomitant]
     Dosage: 150 MG, QD
  12. DEMADEX [Concomitant]
     Dosage: 20 MG, QD
  13. ALBUTEROL SULFATE [Concomitant]
     Indication: WHEEZING
     Dosage: 1.25 MG/3 ML PRN NEB SOLUTION
  14. FERREX [Concomitant]
     Dosage: 150 MG, QD
  15. AMLODIPINE [Concomitant]
     Dosage: 10 MG, QD
  16. OMEPRAZOLE [Concomitant]
     Dosage: 20 MG, QD
  17. ARANESP [Concomitant]
     Indication: HAEMOGLOBIN ABNORMAL
     Dosage: 100 MCG/0.5 ML SYRINGE WEEKLY

REACTIONS (27)
  - ACUTE RESPIRATORY FAILURE [None]
  - ANAEMIA [None]
  - ASTHMA [None]
  - CARDIAC FAILURE CHRONIC [None]
  - CARDIAC VALVE DISEASE [None]
  - CELLULITIS [None]
  - COAGULOPATHY [None]
  - CORONARY ARTERY DISEASE [None]
  - EPISTAXIS [None]
  - FATIGUE [None]
  - FOREIGN BODY TRAUMA [None]
  - GOUT [None]
  - HYPERLIPIDAEMIA [None]
  - HYPERPARATHYROIDISM [None]
  - HYPERTENSIVE NEPHROPATHY [None]
  - HYPOTENSION [None]
  - LEUKAEMOID REACTION [None]
  - LEUKOCYTOSIS [None]
  - NAIL HYPERTROPHY [None]
  - ORAL DISORDER [None]
  - PLEURAL EFFUSION [None]
  - PNEUMONIA KLEBSIELLA [None]
  - RENAL FAILURE ACUTE [None]
  - RENAL FAILURE CHRONIC [None]
  - SLEEP APNOEA SYNDROME [None]
  - SPLEEN DISORDER [None]
  - THROMBOCYTOPENIA [None]
